FAERS Safety Report 6451783-0 (Version None)
Quarter: 2009Q4

REPORT INFORMATION
  Report Type: 
  Country: None (occurrence: None)
  Receive Date: 20091123
  Receipt Date: 20091116
  Transmission Date: 20100525
  Serious: Yes (Life-Threatening, Hospitalization, Other)
  Sender: FDA-Public Use
  Company Number: JP-JNJFOC-20090902551

PATIENT
  Sex: Male

DRUGS (7)
  1. RISPERDAL [Suspect]
     Indication: SUICIDE ATTEMPT
     Route: 048
  2. IBUPROFEN [Suspect]
     Indication: SUICIDE ATTEMPT
     Route: 048
  3. SEROQUEL [Suspect]
     Indication: SUICIDE ATTEMPT
     Route: 048
  4. SOLANAX [Suspect]
     Indication: SUICIDE ATTEMPT
     Route: 048
  5. AKINETON [Suspect]
     Indication: DRUG USE FOR UNKNOWN INDICATION
     Route: 048
  6. PYRAZOLONE [Suspect]
     Indication: SUICIDE ATTEMPT
     Route: 048
  7. UNKNOWN MEDICATION [Suspect]
     Indication: SUICIDE ATTEMPT
     Route: 048

REACTIONS (8)
  - ALTERED STATE OF CONSCIOUSNESS [None]
  - BLOOD CREATINE PHOSPHOKINASE INCREASED [None]
  - DECUBITUS ULCER [None]
  - MULTIPLE DRUG OVERDOSE [None]
  - PNEUMONIA [None]
  - PYREXIA [None]
  - RHABDOMYOLYSIS [None]
  - URTICARIA [None]
